FAERS Safety Report 6584941-5 (Version None)
Quarter: 2010Q1

REPORT INFORMATION
  Report Type: 
  Country: None (occurrence: None)
  Receive Date: 20100217
  Receipt Date: 20100215
  Transmission Date: 20100710
  Serious: Yes (Death, Life-Threatening, Hospitalization)
  Sender: FDA-Public Use
  Company Number: FR-BAYER-200943196GPV

PATIENT
  Age: 77 Year
  Sex: Male
  Weight: 69 kg

DRUGS (11)
  1. SORAFENIB [Suspect]
     Indication: HEPATIC NEOPLASM MALIGNANT
     Dosage: TOTAL DAILY DOSE: 800 MG
     Route: 048
     Dates: start: 20091126, end: 20091213
  2. SORAFENIB [Suspect]
     Dosage: TOTAL DAILY DOSE: 400 MG
     Route: 048
     Dates: start: 20091214, end: 20091214
  3. PLACEBO [Suspect]
     Indication: HEPATIC NEOPLASM MALIGNANT
     Dosage: TOTAL DAILY DOSE: 150 MG
     Route: 048
     Dates: start: 20091126, end: 20091214
  4. AVLOCARDYL [Concomitant]
     Indication: PORTAL HYPERTENSION
     Route: 048
     Dates: start: 20090825, end: 20091216
  5. OMEPRAZOLE [Concomitant]
     Indication: PROPHYLAXIS
     Dates: start: 20091214
  6. ERYTHROMYCIN [Concomitant]
     Indication: RASH
     Dosage: 1 APPLICATION
     Dates: start: 20091210, end: 20091214
  7. PAPULEX [Concomitant]
     Indication: RASH
     Dosage: APPLICATIONS
     Dates: start: 20091210, end: 20091214
  8. KAYEXALATE [Concomitant]
     Indication: LACTIC ACIDOSIS
     Dates: start: 20091217, end: 20091217
  9. ATROPINE [Concomitant]
     Indication: BRADYCARDIA
     Dates: start: 20091218, end: 20091218
  10. MOVICOL [Concomitant]
     Indication: CONSTIPATION
     Dates: start: 20091210, end: 20091214
  11. BICARBONAT SOD [Concomitant]
     Indication: LACTIC ACIDOSIS
     Dates: start: 20091217, end: 20091217

REACTIONS (8)
  - BRADYCARDIA [None]
  - COAGULOPATHY [None]
  - ENCEPHALOPATHY [None]
  - GASTROINTESTINAL HAEMORRHAGE [None]
  - GENERAL PHYSICAL HEALTH DETERIORATION [None]
  - LACTIC ACIDOSIS [None]
  - RENAL FAILURE [None]
  - SEPSIS [None]
